FAERS Safety Report 4330154-7 (Version None)
Quarter: 2004Q1

REPORT INFORMATION
  Report Type: 
  Country: None (occurrence: None)
  Receive Date: 20040329
  Receipt Date: 20040319
  Transmission Date: 20041129
  Serious: Yes (Hospitalization)
  Sender: FDA-Public Use
  Company Number: US-JNJFOC-20031202695

PATIENT
  Age: 27 Year
  Sex: Male

DRUGS (1)
  1. DURAGESIC [Suspect]
     Indication: INTENTIONAL MISUSE
     Dosage: 50 UG/HR, INTRAVENOUS
     Route: 042

REACTIONS (4)
  - APNOEA [None]
  - COMA [None]
  - INTENTIONAL MISUSE [None]
  - MEDICATION ERROR [None]
